FAERS Safety Report 13022977 (Version 1)
Quarter: 2016Q4

REPORT INFORMATION
  Report Type: Spontaneous
  Country: US (occurrence: US)
  Receive Date: 20161213
  Receipt Date: 20161213
  Transmission Date: 20170207
  Serious: Yes (Other)
  Sender: FDA-Public Use
  Company Number: US-BAYER-2016-232424

PATIENT
  Age: 18 Year
  Sex: Male

DRUGS (1)
  1. MIRALAX [Suspect]
     Active Substance: POLYETHYLENE GLYCOL 3350
     Indication: GASTROINTESTINAL DISORDER
     Dosage: 14 DF, ONCE
     Route: 048

REACTIONS (8)
  - Diarrhoea [Unknown]
  - Syncope [Unknown]
  - Hypersensitivity [Unknown]
  - Gait disturbance [Unknown]
  - Flushing [Unknown]
  - Product use issue [None]
  - Off label use [Unknown]
  - Malaise [Unknown]

NARRATIVE: CASE EVENT DATE: 201612
